FAERS Safety Report 19392092 (Version 2)
Quarter: 2021Q3

REPORT INFORMATION
  Report Type: Spontaneous
  Country: DE (occurrence: DE)
  Receive Date: 20210608
  Receipt Date: 20210709
  Transmission Date: 20211014
  Serious: Yes (Other)
  Sender: FDA-Public Use
  Company Number: DE-DSJP-DSE-2021-116583

PATIENT
  Age: 98 Year
  Sex: Female
  Weight: 43 kg

DRUGS (5)
  1. LIXIANA [Suspect]
     Active Substance: EDOXABAN TOSYLATE
     Indication: ATRIAL FIBRILLATION
     Dosage: 30 MG, QD
     Dates: start: 2021, end: 20210526
  2. VITAMIN C [Concomitant]
     Active Substance: ASCORBIC ACID
     Indication: COVID-19
  3. LIXIANA [Suspect]
     Active Substance: EDOXABAN TOSYLATE
     Dosage: 15 MG, QD
     Dates: start: 20210527, end: 20210528
  4. LIXIANA [Suspect]
     Active Substance: EDOXABAN TOSYLATE
     Dosage: 30 MG, QD
     Dates: start: 20210529
  5. VITAMIN C [Concomitant]
     Active Substance: ASCORBIC ACID
     Indication: OSTEOPOROSIS
     Dosage: UNK
     Route: 042

REACTIONS (9)
  - Pain [Unknown]
  - Underdose [Recovered/Resolved]
  - Wrong technique in product usage process [Recovered/Resolved]
  - Haematoma [Not Recovered/Not Resolved]
  - Post procedural haemorrhage [Unknown]
  - Haemorrhage [Unknown]
  - Vessel perforation [Unknown]
  - Petechiae [Unknown]
  - Anal fissure haemorrhage [Recovered/Resolved]

NARRATIVE: CASE EVENT DATE: 202105
